FAERS Safety Report 9648529 (Version 1)
Quarter: 2013Q4

REPORT INFORMATION
  Report Type: Report from Study
  Country: GB (occurrence: GB)
  Receive Date: 20131028
  Receipt Date: 20131028
  Transmission Date: 20140711
  Serious: Yes (Hospitalization)
  Sender: FDA-Public Use
  Company Number: GB-SHIRE-ALL1-2013-07267

PATIENT
  Sex: Male
  Weight: 36.4 kg

DRUGS (17)
  1. IDURSULFASE [Suspect]
     Indication: MUCOPOLYSACCHARIDOSIS II
     Dosage: 18 MG, 1X/WEEK
     Route: 041
     Dates: start: 20070719
  2. IBUPROFEN [Concomitant]
     Indication: PAIN
     Dosage: 200 MG, 3X/DAY:TID
     Route: 048
     Dates: start: 2009, end: 200909
  3. IBUPROFEN [Concomitant]
     Dosage: 100 MG, 3X/DAY:TID
     Route: 048
     Dates: start: 2006, end: 2009
  4. CODEINE PHOSPHATE [Concomitant]
     Indication: PAIN
     Dosage: 30 MG, AS REQ^D
     Route: 048
     Dates: start: 2009, end: 20091204
  5. DICLOFENAC [Concomitant]
     Indication: PAIN
     Dosage: 50 MG, 2X/DAY:BID
     Route: 048
     Dates: start: 200901, end: 20091120
  6. MOVICOL                            /01625101/ [Concomitant]
     Indication: GASTROINTESTINAL DISORDER
     Dosage: UNK, AS REQ^D
     Route: 048
     Dates: start: 200901, end: 20090107
  7. PIRITON [Concomitant]
     Indication: HYPERSENSITIVITY
     Dosage: 5 ML, AS REQ^D
     Route: 048
     Dates: start: 20080403
  8. CHLORPHENAMINE [Concomitant]
     Indication: PREMEDICATION
     Dosage: 2 MG, 1X/WEEK
     Route: 048
     Dates: start: 200803
  9. CHLORPHENAMINE [Concomitant]
     Indication: HYPERSENSITIVITY
     Dosage: 2 MG, AS REQ^D
     Route: 048
     Dates: start: 2006, end: 2009
  10. ACETAMINOPHEN [Concomitant]
     Indication: PREMEDICATION
     Dosage: 450 MG, 1X/WEEK
     Route: 048
     Dates: start: 200803
  11. ACETAMINOPHEN [Concomitant]
     Indication: PAIN
     Dosage: 250 MG, 4X/DAY:QID
     Route: 048
     Dates: start: 2006, end: 2009
  12. RANITIDINE [Concomitant]
     Indication: GASTROINTESTINAL DISORDER
     Dosage: 4 ML, 2X/DAY:BID
     Route: 048
     Dates: start: 200801, end: 200909
  13. SODIUM VALPROATE [Concomitant]
     Indication: NERVOUS SYSTEM DISORDER
     Dosage: 5 ML, 2X/DAY:BID
     Route: 048
     Dates: start: 2007, end: 2009
  14. SODIUM VALPROATE [Concomitant]
     Dosage: 10 ML, 2X/DAY:BID
     Route: 048
     Dates: start: 2004
  15. EPIPEN [Concomitant]
     Indication: FOOD ALLERGY
     Dosage: 300 ?G, AS REQ^D
     Route: 058
     Dates: start: 20060209
  16. IMIPRAMINE [Concomitant]
     Indication: CATAPLEXY
     Dosage: 25 MG, 2X/DAY:BID
     Route: 048
     Dates: start: 2004
  17. MELATONIN [Concomitant]
     Indication: SLEEP DISORDER
     Dosage: 10 MG, 1X/DAY:QD
     Route: 048
     Dates: start: 20090209

REACTIONS (3)
  - Weight bearing difficulty [Unknown]
  - Back pain [Unknown]
  - Pain in extremity [Unknown]
